FAERS Safety Report 11697437 (Version 1)
Quarter: 2015Q4

REPORT INFORMATION
  Report Type: Spontaneous
  Country: US (occurrence: US)
  Receive Date: 20151104
  Receipt Date: 20151104
  Transmission Date: 20160304
  Serious: Yes (Other)
  Sender: FDA-Public Use
  Company Number: US-ASTELLAS-2015JP021857

PATIENT
  Age: 63 Year
  Sex: Female

DRUGS (6)
  1. TACROLIMUS. [Suspect]
     Active Substance: TACROLIMUS
     Indication: IMMUNOSUPPRESSION
     Dosage: UNK UNK, UNKNOWN FREQ.
     Route: 065
  2. NITRIC OXIDE. [Concomitant]
     Active Substance: NITRIC OXIDE
     Indication: RIGHT VENTRICULAR DYSFUNCTION
  3. VASOPRESSORS [Concomitant]
     Active Substance: UNSPECIFIED INGREDIENT
     Indication: VASOPLEGIA SYNDROME
     Dosage: UNK UNK, UNKNOWN FREQ.
     Route: 065
  4. MILRINONE [Concomitant]
     Active Substance: MILRINONE
     Indication: VASOPLEGIA SYNDROME
     Dosage: UNK UNK, UNKNOWN FREQ.
     Route: 065
  5. NITRIC OXIDE. [Concomitant]
     Active Substance: NITRIC OXIDE
     Indication: TRANSPLANT DYSFUNCTION
     Dosage: UNK UNK, UNKNOWN FREQ.
     Route: 065
  6. ANTIBIOTICS [Concomitant]
     Active Substance: UNSPECIFIED INGREDIENT
     Indication: PRODUCT USED FOR UNKNOWN INDICATION
     Dosage: UNK UNK, UNKNOWN FREQ.
     Route: 065

REACTIONS (1)
  - Inappropriate antidiuretic hormone secretion [Recovering/Resolving]
